FAERS Safety Report 9808350 (Version 1)
Quarter: 2014Q1

REPORT INFORMATION
  Report Type: Spontaneous
  Country: US (occurrence: None)
  Receive Date: 20140108
  Receipt Date: 20140108
  Transmission Date: 20141002
  Serious: Yes (Other)
  Sender: FDA-Public Use
  Company Number: DSU-2013-05434

PATIENT
  Age: 53 Year
  Sex: Female
  Weight: 58.06 kg

DRUGS (1)
  1. EVOXAC [Suspect]
     Indication: SJOGREN^S SYNDROME
     Dosage: 60 MG (30 MG, BID)
     Route: 048
     Dates: start: 201307

REACTIONS (2)
  - Angle closure glaucoma [None]
  - Ocular rosacea [None]
